FAERS Safety Report 11790294 (Version 2)
Quarter: 2015Q4

REPORT INFORMATION
  Report Type: Spontaneous
  Country: US (occurrence: US)
  Receive Date: 20151201
  Receipt Date: 20151209
  Transmission Date: 20160305
  Serious: No
  Sender: FDA-Public Use
  Company Number: US-ASTRAZENECA-2015SF08341

PATIENT
  Sex: Male
  Weight: 113.4 kg

DRUGS (2)
  1. SYMBICORT [Suspect]
     Active Substance: BUDESONIDE\FORMOTEROL FUMARATE DIHYDRATE
     Indication: CHRONIC OBSTRUCTIVE PULMONARY DISEASE
     Dosage: 160 OVER 4.5, 2 PUFFS; TWO TIMES A DAY
     Route: 055
     Dates: start: 201510
  2. SYMBICORT [Suspect]
     Active Substance: BUDESONIDE\FORMOTEROL FUMARATE DIHYDRATE
     Indication: ASTHMA
     Dosage: 160 OVER 4.5, 2 PUFFS; TWO TIMES A DAY
     Route: 055
     Dates: start: 201510

REACTIONS (5)
  - Device malfunction [Unknown]
  - Dyspnoea [Unknown]
  - Drug dose omission [Unknown]
  - Choking [Unknown]
  - Product quality issue [Unknown]
